FAERS Safety Report 16204847 (Version 2)
Quarter: 2021Q2

REPORT INFORMATION
  Report Type: Spontaneous
  Country: US (occurrence: US)
  Receive Date: 20190416
  Receipt Date: 20210618
  Transmission Date: 20210716
  Serious: Yes (Death, Other)
  Sender: FDA-Public Use
  Company Number: US-ASTRAZENECA-2019SE56562

PATIENT
  Sex: Male
  Weight: 77.1 kg

DRUGS (20)
  1. PROTONIX [Suspect]
     Active Substance: PANTOPRAZOLE SODIUM
     Indication: GASTROOESOPHAGEAL REFLUX DISEASE
     Route: 065
     Dates: start: 200701, end: 201603
  2. PROTONIX [Suspect]
     Active Substance: PANTOPRAZOLE SODIUM
     Indication: GASTROOESOPHAGEAL REFLUX DISEASE
     Route: 065
     Dates: start: 2007, end: 2016
  3. AZELASTINE. [Concomitant]
     Active Substance: AZELASTINE HYDROCHLORIDE
     Indication: HYPERSENSITIVITY
     Dates: start: 2015
  4. FUROSEMIDE. [Concomitant]
     Active Substance: FUROSEMIDE
     Indication: DIURETIC THERAPY
     Dates: start: 2010
  5. NEXIUM [Suspect]
     Active Substance: ESOMEPRAZOLE MAGNESIUM
     Indication: GASTROOESOPHAGEAL REFLUX DISEASE
     Route: 048
     Dates: start: 2007, end: 2016
  6. BROMAZINE HYDROCHLORIDE/DIPHENHYDRAMINE HYDROCHLORIDE/HYDROCODONE BITARTRATE/AMMONIUM CHLORIDE/SULFO [Concomitant]
     Indication: PAIN
     Dates: start: 2015, end: 2016
  7. LOSARTAN. [Concomitant]
     Active Substance: LOSARTAN
     Indication: BLOOD PRESSURE MEASUREMENT
     Dates: start: 2012
  8. METOLAZONE. [Concomitant]
     Active Substance: METOLAZONE
     Indication: BLOOD PRESSURE MEASUREMENT
     Dates: start: 2015
  9. PREVACID [Suspect]
     Active Substance: LANSOPRAZOLE
     Indication: GASTROOESOPHAGEAL REFLUX DISEASE
     Route: 065
     Dates: start: 200701, end: 201603
  10. PREVACID [Suspect]
     Active Substance: LANSOPRAZOLE
     Indication: GASTROOESOPHAGEAL REFLUX DISEASE
     Route: 065
     Dates: start: 2007, end: 2016
  11. ERYTHROMYCIN. [Concomitant]
     Active Substance: ERYTHROMYCIN
     Indication: ANTIBIOTIC THERAPY
     Dates: start: 2015
  12. BUMETANIDE. [Concomitant]
     Active Substance: BUMETANIDE
     Indication: BLOOD PRESSURE MEASUREMENT
     Dates: start: 2015, end: 2016
  13. PRILOSEC [Suspect]
     Active Substance: OMEPRAZOLE MAGNESIUM
     Indication: GASTROOESOPHAGEAL REFLUX DISEASE
     Route: 048
     Dates: start: 2007, end: 2016
  14. FLUVIRIN NOS [Concomitant]
     Active Substance: INFLUENZA VIRUS VACCINE
     Indication: INFLUENZA
     Dates: start: 2011
  15. NEXIUM [Suspect]
     Active Substance: ESOMEPRAZOLE MAGNESIUM
     Indication: GASTROOESOPHAGEAL REFLUX DISEASE
     Route: 048
     Dates: start: 200701, end: 201603
  16. GENTAMICIN. [Concomitant]
     Active Substance: GENTAMICIN
     Indication: ANTIBIOTIC THERAPY
     Dates: start: 2016
  17. KLOR?CON [Concomitant]
     Active Substance: POTASSIUM CHLORIDE
     Indication: SUPPLEMENTATION THERAPY
     Dates: start: 2010
  18. PRILOSEC [Suspect]
     Active Substance: OMEPRAZOLE MAGNESIUM
     Indication: GASTROOESOPHAGEAL REFLUX DISEASE
     Route: 048
     Dates: start: 200701, end: 201603
  19. FERROUS GLUCONATE [Concomitant]
     Active Substance: FERROUS GLUCONATE
     Indication: SUPPLEMENTATION THERAPY
     Dates: start: 2015
  20. ISOSORBIDE DINITRATE. [Concomitant]
     Active Substance: ISOSORBIDE DINITRATE
     Indication: VASODILATATION
     Dates: start: 2015

REACTIONS (4)
  - End stage renal disease [Fatal]
  - Acute kidney injury [Unknown]
  - Renal injury [Unknown]
  - Chronic kidney disease [Unknown]
